FAERS Safety Report 17484797 (Version 5)
Quarter: 2022Q1

REPORT INFORMATION
  Report Type: Spontaneous
  Country: JP (occurrence: JP)
  Receive Date: 20200302
  Receipt Date: 20220130
  Transmission Date: 20220423
  Serious: Yes (Death, Life-Threatening, Other)
  Sender: FDA-Public Use
  Company Number: JP-JAZZ-2020-JP-002971

PATIENT
  Age: 59 Year
  Sex: Male
  Weight: 47.5 kg

DRUGS (3)
  1. DEFITELIO [Suspect]
     Active Substance: DEFIBROTIDE SODIUM
     Indication: Venoocclusive liver disease
     Dosage: 25 MILLIGRAM/KILOGRAM, QD (24 HOURS)
     Route: 042
     Dates: start: 20191216, end: 20200107
  2. DEFITELIO [Suspect]
     Active Substance: DEFIBROTIDE SODIUM
     Dosage: 25 MILLIGRAM/KILOGRAM, QD (24 HOURS)
     Route: 042
     Dates: start: 20200130, end: 20200204
  3. HEPARIN [Concomitant]
     Active Substance: HEPARIN SODIUM
     Indication: Product used for unknown indication
     Dosage: UNK
     Dates: start: 20191121, end: 20200107

REACTIONS (8)
  - Death [Fatal]
  - Venoocclusive liver disease [Fatal]
  - Condition aggravated [Fatal]
  - Gastrointestinal haemorrhage [Unknown]
  - Graft versus host disease in liver [Unknown]
  - Blood pressure decreased [Unknown]
  - Epistaxis [Recovering/Resolving]
  - Off label use [Unknown]

NARRATIVE: CASE EVENT DATE: 20191217
